FAERS Safety Report 5758467-2 (Version None)
Quarter: 2008Q2

REPORT INFORMATION
  Report Type: 
  Country: None (occurrence: None)
  Receive Date: 20080604
  Receipt Date: 20080527
  Transmission Date: 20081010
  Serious: Yes (Other)
  Sender: FDA-Public Use
  Company Number: GB-AVENTIS-200812521EU

PATIENT
  Sex: Female

DRUGS (1)
  1. CLEXANE [Suspect]
     Dosage: DOSE: UNK
     Route: 058
     Dates: start: 20080401

REACTIONS (1)
  - ERYTHEMA MULTIFORME [None]
